FAERS Safety Report 21969310 (Version 1)
Quarter: 2023Q1

REPORT INFORMATION
  Report Type: Spontaneous
  Country: US (occurrence: None)
  Receive Date: 20230207
  Receipt Date: 20230207
  Transmission Date: 20230417
  Serious: Yes (Hospitalization, Other)
  Sender: FDA-Public Use
  Company Number: None

PATIENT
  Age: 50 Year
  Sex: Male
  Weight: 126 kg

DRUGS (6)
  1. SINGULAIR [Suspect]
     Active Substance: MONTELUKAST SODIUM
     Indication: Asthma
     Dosage: FREQUENCY : DAILY;?
     Route: 048
     Dates: start: 20220101, end: 20230206
  2. LISINOPRIL [Concomitant]
     Active Substance: LISINOPRIL
  3. albuterol rescue inhaler [Concomitant]
  4. SPIRIVA [Concomitant]
     Active Substance: TIOTROPIUM BROMIDE MONOHYDRATE
  5. Super beets juice [Concomitant]
  6. Whole Foods vitamin [Concomitant]

REACTIONS (10)
  - Mood swings [None]
  - Feeling abnormal [None]
  - Depression [None]
  - Change in sustained attention [None]
  - Suicidal ideation [None]
  - Hallucination, auditory [None]
  - Agitation [None]
  - Road traffic accident [None]
  - Abnormal behaviour [None]
  - Legal problem [None]

NARRATIVE: CASE EVENT DATE: 20230205
